FAERS Safety Report 13590024 (Version 2)
Quarter: 2017Q2

REPORT INFORMATION
  Report Type: Report from Study
  Country: US (occurrence: US)
  Receive Date: 20170529
  Receipt Date: 20170627
  Transmission Date: 20170830
  Serious: Yes (Hospitalization, Other)
  Sender: FDA-Public Use
  Company Number: US-GILEAD-2017-0274868

PATIENT
  Age: 67 Year
  Sex: Female
  Weight: 49.43 kg

DRUGS (3)
  1. AMBRISENTAN [Suspect]
     Active Substance: AMBRISENTAN
     Indication: PULMONARY HYPERTENSION
     Dosage: 10 MG, QD
     Route: 048
  2. CLONAZEPAM. [Concomitant]
     Active Substance: CLONAZEPAM
  3. MIDODRINE [Concomitant]
     Active Substance: MIDODRINE

REACTIONS (2)
  - Skin graft [Recovered/Resolved]
  - Catheter placement [Recovered/Resolved]
